FAERS Safety Report 5956767-4 (Version None)
Quarter: 2008Q4

REPORT INFORMATION
  Report Type: 
  Country: None (occurrence: None)
  Receive Date: 20081118
  Receipt Date: 20081107
  Transmission Date: 20090506
  Serious: Yes (Hospitalization)
  Sender: FDA-Public Use
  Company Number: IT-ROCHE-595827

PATIENT
  Sex: Female

DRUGS (4)
  1. BONIVA [Suspect]
     Indication: OSTEOPOROSIS
     Dosage: DOSAGE REGIMEN: 1 X MONTH
     Route: 048
     Dates: start: 20080401, end: 20081101
  2. ZOFENOPRIL CALCIUM [Concomitant]
     Dosage: NAME: BIFRIZIDE
     Route: 065
  3. LERCADIP [Concomitant]
     Route: 065
  4. ALIFLUS [Concomitant]
     Indication: CHRONIC OBSTRUCTIVE PULMONARY DISEASE
     Dosage: NAME: ALIFLUS DISKUS
     Route: 065

REACTIONS (3)
  - APATHY [None]
  - HYPERSENSITIVITY [None]
  - URTICARIA [None]
